FAERS Safety Report 6670513-0 (Version None)
Quarter: 2010Q2

REPORT INFORMATION
  Report Type: 
  Country: None (occurrence: None)
  Receive Date: 20100407
  Receipt Date: 20100329
  Transmission Date: 20101027
  Serious: No
  Sender: FDA-Public Use
  Company Number: US-BIOGENIDEC-2010BI010777

PATIENT
  Age: 55 Year
  Sex: Female

DRUGS (2)
  1. TYSABRI [Suspect]
     Indication: MULTIPLE SCLEROSIS
     Route: 042
     Dates: start: 20080101
  2. TYSABRI [Suspect]
     Route: 042
     Dates: start: 20090101

REACTIONS (2)
  - BLOOD PRESSURE DECREASED [None]
  - GAIT DISTURBANCE [None]
